FAERS Safety Report 6356009-4 (Version None)
Quarter: 2009Q3

REPORT INFORMATION
  Report Type: 
  Country: None (occurrence: None)
  Receive Date: 20090915
  Receipt Date: 20090903
  Transmission Date: 20100115
  Serious: Yes (Death)
  Sender: FDA-Public Use
  Company Number: JP-AMGEN-US349134

PATIENT
  Age: 70 Year
  Sex: Male

DRUGS (14)
  1. ENBREL [Suspect]
     Indication: RHEUMATOID ARTHRITIS
     Route: 058
     Dates: start: 20081022, end: 20090207
  2. AZULFIDINE [Concomitant]
     Indication: RHEUMATOID ARTHRITIS
     Route: 048
  3. MOBIC [Concomitant]
     Indication: RHEUMATOID ARTHRITIS
     Route: 048
  4. PREDNISOLONE [Concomitant]
     Indication: RHEUMATOID ARTHRITIS
     Route: 048
     Dates: end: 20080501
  5. PREDNISOLONE [Concomitant]
     Route: 048
     Dates: start: 20080501
  6. MYONAL [Concomitant]
     Indication: BACK PAIN
     Route: 048
  7. RHEUMATREX [Concomitant]
     Indication: RHEUMATOID ARTHRITIS
     Route: 048
     Dates: start: 20080701
  8. AMARYL [Concomitant]
     Route: 048
  9. RANITIDINE HYDROCHLORIDE [Concomitant]
     Indication: GASTRITIS
     Route: 048
  10. METHAPHYLLIN [Concomitant]
     Indication: ASTHMA
     Route: 048
  11. PARAPROST [Concomitant]
     Route: 048
  12. CARBOCISTEINE [Concomitant]
     Indication: ASTHMA
     Route: 048
  13. RIMATIL [Concomitant]
     Indication: RHEUMATOID ARTHRITIS
     Route: 048
  14. INSULIN [Concomitant]
     Indication: DIABETES MELLITUS
     Dosage: UNSPECIFIED
     Route: 058

REACTIONS (2)
  - ACUTE RESPIRATORY DISTRESS SYNDROME [None]
  - PNEUMONIA [None]
